FAERS Safety Report 6142739-6 (Version None)
Quarter: 2009Q2

REPORT INFORMATION
  Report Type: 
  Country: None (occurrence: None)
  Receive Date: 20090403
  Receipt Date: 20090325
  Transmission Date: 20091009
  Serious: Yes (Other)
  Sender: FDA-Public Use
  Company Number: US-AMGEN-QUU340241

PATIENT
  Sex: Female

DRUGS (1)
  1. ENBREL [Suspect]
     Indication: RHEUMATOID ARTHRITIS

REACTIONS (7)
  - ANKLE FRACTURE [None]
  - FOOT FRACTURE [None]
  - HEADACHE [None]
  - OSTEOPOROSIS [None]
  - PARAESTHESIA [None]
  - SINUSITIS [None]
  - VISION BLURRED [None]
